FAERS Safety Report 10952094 (Version 1)
Quarter: 2015Q1

REPORT INFORMATION
  Report Type: Spontaneous
  Country: US (occurrence: None)
  Receive Date: 20150324
  Receipt Date: 20150324
  Transmission Date: 20150721
  Serious: Yes (Hospitalization)
  Sender: FDA-Public Use
  Company Number: None

PATIENT
  Age: 63 Year
  Sex: Male
  Weight: 65.77 kg

DRUGS (1)
  1. HYOSCYAMINE [Suspect]
     Active Substance: HYOSCYAMINE
     Indication: GASTROINTESTINAL DISORDER
     Dosage: 0.125 MG EVERY 8 HOURS UNDER TONGUE
     Route: 048

REACTIONS (1)
  - Throat tightness [None]

NARRATIVE: CASE EVENT DATE: 20150307
